FAERS Safety Report 16333134 (Version 7)
Quarter: 2020Q2

REPORT INFORMATION
  Report Type: Spontaneous
  Country: US (occurrence: US)
  Receive Date: 20190520
  Receipt Date: 20200520
  Transmission Date: 20200713
  Serious: Yes (Other)
  Sender: FDA-Public Use
  Company Number: US-PFIZER INC-2019212093

PATIENT
  Age: 62 Year
  Sex: Female

DRUGS (7)
  1. LYRICA [Suspect]
     Active Substance: PREGABALIN
     Dosage: 100 MG, DAILY (50 MG 2 TABS DAILY)
     Route: 048
  2. LYRICA [Suspect]
     Active Substance: PREGABALIN
     Dosage: 50 MG, DAILY
     Route: 048
  3. LYRICA [Suspect]
     Active Substance: PREGABALIN
     Dosage: 150 MG, 2X/DAY (TAKE 50MG IN THE MORNING AND 100MG AT NIGHT)
  4. LYRICA [Suspect]
     Active Substance: PREGABALIN
     Dosage: UNK
  5. LYRICA [Suspect]
     Active Substance: PREGABALIN
     Indication: FIBROMYALGIA
     Dosage: 25 MG, 1X/DAY
  6. LYRICA [Suspect]
     Active Substance: PREGABALIN
     Dosage: 200 MG, DAILY (100MG IN MORNING, THEN 50MG AT 7 PM AND 50MG AT 11 PM)
  7. ALPRAZOLAM. [Concomitant]
     Active Substance: ALPRAZOLAM
     Dosage: 0.5 MG, AS NEEDED

REACTIONS (9)
  - Headache [Unknown]
  - Pain [Unknown]
  - Spinal disorder [Unknown]
  - Drug ineffective [Unknown]
  - Cervix disorder [Unknown]
  - Hypoaesthesia [Unknown]
  - Mental impairment [Unknown]
  - Musculoskeletal pain [Unknown]
  - Arthralgia [Unknown]

NARRATIVE: CASE EVENT DATE: 202004
